FAERS Safety Report 11191141 (Version 1)
Quarter: 2015Q2

REPORT INFORMATION
  Report Type: Spontaneous
  Country: US (occurrence: US)
  Receive Date: 20150615
  Receipt Date: 20150615
  Transmission Date: 20150821
  Serious: No
  Sender: FDA-Public Use
  Company Number: US-GLAXOSMITHKLINE-US2015GSK079497

PATIENT
  Sex: Female
  Weight: 73 kg

DRUGS (2)
  1. IMITREX [Suspect]
     Active Substance: SUMATRIPTAN\SUMATRIPTAN SUCCINATE
     Indication: HEADACHE
  2. IMITREX [Suspect]
     Active Substance: SUMATRIPTAN\SUMATRIPTAN SUCCINATE
     Indication: MIGRAINE
     Dosage: 1 DF, TID
     Dates: start: 201411

REACTIONS (3)
  - Malaise [Recovered/Resolved]
  - Emotional distress [Unknown]
  - Drug ineffective [Unknown]
